FAERS Safety Report 7653697 (Version 1)
Quarter: 2020Q3

REPORT INFORMATION
  Report Type: Spontaneous
  Country: GB (occurrence: GB)
  Receive Date: 20101102
  Receipt Date: 20101102
  Transmission Date: 20201105
  Serious: Yes (Other)
  Sender: FDA-Public Use
  Company Number: GB-ROCHE-735226

PATIENT
  Age: 74 Year
  Sex: Female
  Weight: 68 kg

DRUGS (4)
  1. FASLODEX [Suspect]
     Active Substance: FULVESTRANT
     Route: 030
     Dates: start: 20100426
  2. ASPIRIN. [Concomitant]
     Active Substance: ASPIRIN
     Indication: TRANSIENT ISCHAEMIC ATTACK
     Dosage: FOR MINOR TIA AND PAROXYSMAL ATRIAL FIBRILLATION
  3. IBANDRONIC ACID. [Suspect]
     Active Substance: IBANDRONIC ACID
     Dosage: INDICATION REPORTED AS METASTATIC BREAST CANCER IN BONE
     Route: 048
     Dates: start: 20100426
  4. AMIODARONE [Concomitant]
     Active Substance: AMIODARONE
     Dosage: REPORTED AS AMIODERONE
     Route: 048
     Dates: start: 20100324, end: 20100923

REACTIONS (2)
  - Optic nerve injury [Recovering/Resolving]
  - Vitreous detachment [Unknown]

NARRATIVE: CASE EVENT DATE: 20100624
